FAERS Safety Report 8947433 (Version 1)
Quarter: 2012Q4

REPORT INFORMATION
  Report Type: 
  Country: US (occurrence: US)
  Receive Date: 20121205
  Receipt Date: 20121205
  Transmission Date: 20130627
  Serious: Yes (Other)
  Sender: FDA-Public Use
  Company Number: US-ALLERGAN-1216549US

PATIENT
  Sex: Male

DRUGS (3)
  1. BOTOX COSMETIC [Suspect]
     Indication: FROWN LINES
     Dosage: 50 UNITS, single
     Route: 030
     Dates: start: 201211, end: 201211
  2. BOTOX COSMETIC [Suspect]
     Indication: GLABELLAR FROWN LINES
  3. BOTOX COSMETIC [Suspect]
     Indication: CROW^S FEET

REACTIONS (1)
  - Retinal vein occlusion [Unknown]
